FAERS Safety Report 8610211-7 (Version None)
Quarter: 2012Q3

REPORT INFORMATION
  Report Type: 
  Country: None (occurrence: None)
  Receive Date: 20120822
  Receipt Date: 20120821
  Transmission Date: 20120928
  Serious: Yes (Hospitalization)
  Sender: FDA-Public Use
  Company Number: US-AMGEN-USASP2012047860

PATIENT
  Sex: Female

DRUGS (1)
  1. ENBREL [Suspect]
     Indication: RHEUMATOID ARTHRITIS
     Dosage: 50 MG, QWK
     Dates: start: 20011212

REACTIONS (4)
  - INJECTION SITE PAIN [None]
  - DUODENAL NEOPLASM [None]
  - ABDOMINAL PAIN UPPER [None]
  - SPHINCTER OF ODDI DYSFUNCTION [None]
